FAERS Safety Report 5676021-8 (Version None)
Quarter: 2008Q1

REPORT INFORMATION
  Report Type: 
  Country: None (occurrence: None)
  Receive Date: 20080318
  Receipt Date: 20080305
  Transmission Date: 20080703
  Serious: Yes (Hospitalization)
  Sender: FDA-Public Use
  Company Number: 013400

PATIENT
  Age: 74 Year
  Sex: Female

DRUGS (11)
  1. PRIALT [Suspect]
     Indication: BACK PAIN
     Dosage: 0.054 UG, ONCE/HOUR, INTRATHECAL; 0.104 UG, ONCE/HOUR, INTRATHECAL
     Route: 037
     Dates: end: 20080116
  2. PRIALT [Suspect]
     Indication: PAIN IN EXTREMITY
     Dosage: 0.054 UG, ONCE/HOUR, INTRATHECAL; 0.104 UG, ONCE/HOUR, INTRATHECAL
     Route: 037
     Dates: end: 20080116
  3. PRIALT [Suspect]
     Indication: SPINAL CORD INJURY
     Dosage: 0.054 UG, ONCE/HOUR, INTRATHECAL; 0.104 UG, ONCE/HOUR, INTRATHECAL
     Route: 037
     Dates: end: 20080116
  4. PRIALT [Suspect]
     Indication: BACK PAIN
     Dosage: 0.054 UG, ONCE/HOUR, INTRATHECAL; 0.104 UG, ONCE/HOUR, INTRATHECAL
     Route: 037
     Dates: start: 20071102
  5. PRIALT [Suspect]
     Indication: PAIN IN EXTREMITY
     Dosage: 0.054 UG, ONCE/HOUR, INTRATHECAL; 0.104 UG, ONCE/HOUR, INTRATHECAL
     Route: 037
     Dates: start: 20071102
  6. PRIALT [Suspect]
     Indication: SPINAL CORD INJURY
     Dosage: 0.054 UG, ONCE/HOUR, INTRATHECAL; 0.104 UG, ONCE/HOUR, INTRATHECAL
     Route: 037
     Dates: start: 20071102
  7. MORPHINE [Concomitant]
  8. PERCOCET [Concomitant]
  9. XANAX [Concomitant]
  10. OXYCODONE HCL [Concomitant]
  11. LORTAB [Concomitant]

REACTIONS (4)
  - CONFUSIONAL STATE [None]
  - DISORIENTATION [None]
  - HALLUCINATION, VISUAL [None]
  - PNEUMONIA [None]
